FAERS Safety Report 18093417 (Version 1)
Quarter: 2020Q3

REPORT INFORMATION
  Report Type: Spontaneous
  Country: US (occurrence: US)
  Receive Date: 20200730
  Receipt Date: 20200730
  Transmission Date: 20201103
  Serious: No
  Sender: FDA-Public Use
  Company Number: US-009507513-2007USA008768

PATIENT
  Sex: Male

DRUGS (2)
  1. SINEMET [Suspect]
     Active Substance: CARBIDOPA\LEVODOPA
     Indication: PRODUCT USED FOR UNKNOWN INDICATION
     Dosage: DOSE: 25?100 MG, 5 TIMES A DAY
     Route: 048
  2. LEVODOPA [Concomitant]
     Active Substance: LEVODOPA
     Dosage: 84 MILLIGRAM, PRN

REACTIONS (16)
  - Postural tremor [Unknown]
  - Bradykinesia [Unknown]
  - Condition aggravated [Not Recovered/Not Resolved]
  - Trismus [Not Recovered/Not Resolved]
  - Balance disorder [Unknown]
  - Head titubation [Unknown]
  - Movement disorder [Unknown]
  - Dizziness [Unknown]
  - Abnormal dreams [Not Recovered/Not Resolved]
  - Drug ineffective [Unknown]
  - Speech sound disorder [Unknown]
  - Posture abnormal [Unknown]
  - Dysgraphia [Unknown]
  - Reduced facial expression [Unknown]
  - Gait disturbance [Unknown]
  - Nightmare [Not Recovered/Not Resolved]
